FAERS Safety Report 7648745-4 (Version None)
Quarter: 2011Q3

REPORT INFORMATION
  Report Type: 
  Country: None (occurrence: None)
  Receive Date: 20110801
  Receipt Date: 20110727
  Transmission Date: 20111222
  Serious: Yes (Death)
  Sender: FDA-Public Use
  Company Number: PHHY2011US67834

PATIENT
  Sex: Male

DRUGS (10)
  1. ALLOPURINOL [Concomitant]
     Dosage: UNK UKN, UNK
  2. PREDNISOLONE [Concomitant]
     Dosage: UNK UKN, UNK
  3. NEORAL [Suspect]
     Indication: PANCREAS TRANSPLANT
  4. FOSAMAX [Concomitant]
  5. IMURAN [Concomitant]
  6. LASIX [Concomitant]
  7. NEORAL [Suspect]
     Indication: RENAL TRANSPLANT
     Dosage: 120/25 MG TWICE A DAY
     Dates: start: 20110717
  8. ALPHAGAN [Concomitant]
  9. NEXIUM [Concomitant]
     Dosage: UNK UKN, UNK
  10. PRILOSEC [Concomitant]
     Dosage: UNK UKN, UNK

REACTIONS (1)
  - DEATH [None]
